FAERS Safety Report 20930648 (Version 1)
Quarter: 2022Q2

REPORT INFORMATION
  Report Type: Spontaneous
  Country: FR (occurrence: FR)
  Receive Date: 20220608
  Receipt Date: 20220608
  Transmission Date: 20220720
  Serious: Yes (Other)
  Sender: FDA-Public Use
  Company Number: None

PATIENT
  Age: 1 Year
  Sex: Male
  Weight: 13 kg

DRUGS (1)
  1. BETAMETHASONE [Suspect]
     Active Substance: BETAMETHASONE
     Indication: Asthma
     Dosage: 220 MG,ORAL SOLUTION IN DROPS
     Route: 048
     Dates: start: 20211231, end: 20220224

REACTIONS (5)
  - Hypertension [Recovering/Resolving]
  - Adrenal insufficiency [Recovering/Resolving]
  - Inappropriate schedule of product administration [Recovered/Resolved]
  - Weight increased [Not Recovered/Not Resolved]
  - Incorrect dosage administered [Recovered/Resolved]

NARRATIVE: CASE EVENT DATE: 20211231
